FAERS Safety Report 17198866 (Version 1)
Quarter: 2019Q4

REPORT INFORMATION
  Report Type: Spontaneous
  Country: DE (occurrence: DE)
  Receive Date: 20191225
  Receipt Date: 20191225
  Transmission Date: 20200122
  Serious: Yes (Life-Threatening, Hospitalization, Other)
  Sender: FDA-Public Use
  Company Number: DE-SAMSUNG BIOEPIS-SB-2019-38275

PATIENT
  Age: 68 Year
  Sex: Female

DRUGS (4)
  1. MTX [Concomitant]
     Active Substance: METHOTREXATE SODIUM
     Route: 065
  2. BENEPALI [Suspect]
     Active Substance: ETANERCEPT
     Indication: PRODUCT USED FOR UNKNOWN INDICATION
     Dosage: UNKNOWN
     Route: 065
     Dates: start: 201807
  3. MTX [Concomitant]
     Active Substance: METHOTREXATE SODIUM
     Indication: PRODUCT USED FOR UNKNOWN INDICATION
     Route: 065
  4. HUMIRA [Suspect]
     Active Substance: ADALIMUMAB
     Indication: RHEUMATOID ARTHRITIS
     Route: 058
     Dates: start: 201309, end: 201707

REACTIONS (12)
  - Peritoneal adhesions [Unknown]
  - Intestinal stenosis [Unknown]
  - Diverticulitis [Unknown]
  - Peritonitis [Unknown]
  - Large intestine perforation [Unknown]
  - Cataract [Unknown]
  - Blood creatinine increased [Unknown]
  - Gastroenteritis clostridial [Unknown]
  - Abscess intestinal [Unknown]
  - Urinary tract infection [Unknown]
  - Pneumonia [Unknown]
  - Renal failure [Unknown]
